FAERS Safety Report 18256976 (Version 1)
Quarter: 2020Q3

REPORT INFORMATION
  Report Type: Spontaneous
  Country: US (occurrence: US)
  Receive Date: 20200911
  Receipt Date: 20200911
  Transmission Date: 20201103
  Serious: No
  Sender: FDA-Public Use
  Company Number: US-ASTRAZENECA-2020SF10561

PATIENT
  Age: 46 Year
  Sex: Female
  Weight: 68 kg

DRUGS (3)
  1. SYMBICORT [Suspect]
     Active Substance: BUDESONIDE\FORMOTEROL FUMARATE DIHYDRATE
     Indication: ASTHMA
     Dosage: UNKNOWN UNKNOWN
     Route: 055
     Dates: start: 2006, end: 2006
  2. SYMBICORT [Suspect]
     Active Substance: BUDESONIDE\FORMOTEROL FUMARATE DIHYDRATE
     Indication: PULMONARY HYPERTENSION
     Dosage: UNKNOWN UNKNOWN
     Route: 055
     Dates: start: 2006, end: 2006
  3. SYMBICORT [Suspect]
     Active Substance: BUDESONIDE\FORMOTEROL FUMARATE DIHYDRATE
     Indication: SARCOIDOSIS
     Dosage: UNKNOWN UNKNOWN
     Route: 055
     Dates: start: 2006, end: 2006

REACTIONS (3)
  - Product taste abnormal [Unknown]
  - Drug ineffective [Unknown]
  - Choking [Unknown]

NARRATIVE: CASE EVENT DATE: 2006
